FAERS Safety Report 25122782 (Version 4)
Quarter: 2025Q3

REPORT INFORMATION
  Report Type: Spontaneous
  Country: GB (occurrence: GB)
  Receive Date: 20250326
  Receipt Date: 20250723
  Transmission Date: 20251020
  Serious: Yes (Death, Hospitalization, Other)
  Sender: ADVANZ PHARMA
  Company Number: GB-SANDOZ-SDZ2025GB015693

PATIENT

DRUGS (3)
  1. PREDNISOLONE [Suspect]
     Active Substance: PREDNISOLONE
     Indication: Product use in unapproved indication
     Route: 065
  2. TACROLIMUS [Suspect]
     Active Substance: TACROLIMUS
     Indication: Renal transplant
     Route: 048
  3. MYFENAX [Suspect]
     Active Substance: MYCOPHENOLATE MOFETIL
     Indication: Product use in unapproved indication
     Route: 065

REACTIONS (3)
  - Death [Fatal]
  - Illness [Unknown]
  - Dialysis [Recovered/Resolved]
